FAERS Safety Report 7896466 (Version 4)
Quarter: 2012Q4

REPORT INFORMATION
  Report Type: 
  Country: US (occurrence: US)
  Receive Date: 20110413
  Receipt Date: 20120828
  Transmission Date: 20130627
  Serious: Yes (Hospitalization, Other)
  Sender: FDA-Public Use
  Company Number: US-BAYER-2010-002700

PATIENT
  Age: 38 Year
  Sex: Female

DRUGS (15)
  1. YASMIN [Suspect]
     Indication: PRODUCT USED FOR UNKNOWN INDICATION
     Dosage: UNK
     Dates: start: 2002, end: 2006
  2. IBUPROFEN [Concomitant]
     Indication: PAIN
     Dosage: 800 mg, every 6 hours as needed
     Route: 048
  3. PERCOCET [Concomitant]
     Indication: PAIN
     Dosage: 5-325 mg, 1 to 2 every 6 hours as needed
     Route: 048
  4. PHENERGAN [Concomitant]
     Dosage: 25 mg, every 6 hours with Percocet
     Route: 048
  5. VALIUM [Concomitant]
     Dosage: 2 mg, TID as needed
     Route: 048
  6. FLEXERIL [Concomitant]
     Indication: BACK PAIN
     Dosage: 1 to 2 as needed
     Route: 048
  7. DICLOFENAC [Concomitant]
     Indication: MUSCLE SPASMS
     Dosage: 75 mg, daily as needed
     Route: 048
  8. ZEGERID [Concomitant]
     Dosage: 20-1100 mg daily
     Route: 048
  9. HYDROCHLOROTHIAZIDE [Concomitant]
     Dosage: 25 mg, daily
     Route: 048
  10. MOBIC [Concomitant]
  11. ZYRTEC [Concomitant]
  12. LISINOPRIL [Concomitant]
  13. SINGULAIR [Concomitant]
  14. OMNICEF [Concomitant]
  15. ATIVAN [Concomitant]

REACTIONS (5)
  - Gallbladder injury [None]
  - Cholecystitis acute [None]
  - Pulmonary embolism [Recovered/Resolved]
  - Thrombosis [None]
  - Deep vein thrombosis [Recovered/Resolved]
